FAERS Safety Report 18577446 (Version 1)
Quarter: 2020Q4

REPORT INFORMATION
  Report Type: Report from Study
  Country: None (occurrence: NL)
  Receive Date: 20201204
  Receipt Date: 20201204
  Transmission Date: 20210114
  Serious: Yes (Death)
  Sender: FDA-Public Use
  Company Number: NL-ABBVIE-20K-114-3677275-00

PATIENT
  Age: 81 Year
  Sex: Male

DRUGS (4)
  1. DUODOPA [Suspect]
     Active Substance: CARBIDOPA\LEVODOPA
     Indication: PARKINSON^S DISEASE
     Route: 050
     Dates: start: 20200203, end: 20201129
  2. TEMAZEPAM. [Concomitant]
     Active Substance: TEMAZEPAM
     Indication: SLEEP DISORDER
     Dosage: 2 TIMES 1 TABLET PER DAY IF NECESSARY
  3. DUODOPA [Suspect]
     Active Substance: CARBIDOPA\LEVODOPA
  4. LEVODOPA/CARBIDOPA [Concomitant]
     Active Substance: CARBIDOPA\LEVODOPA
     Indication: PARKINSON^S DISEASE
     Dosage: LEVOLDOPA/CARBIDOPA RETARD. 200/50 MG.

REACTIONS (2)
  - Asphyxia [Fatal]
  - Choking [Fatal]

NARRATIVE: CASE EVENT DATE: 2020
